FAERS Safety Report 20810939 (Version 13)
Quarter: 2025Q1

REPORT INFORMATION
  Report Type: Spontaneous
  Country: US (occurrence: US)
  Receive Date: 20220510
  Receipt Date: 20250319
  Transmission Date: 20250409
  Serious: No
  Sender: PFIZER
  Company Number: US-PFIZER INC-202200630358

PATIENT
  Age: 88 Year
  Sex: Female

DRUGS (4)
  1. IBRANCE [Suspect]
     Active Substance: PALBOCICLIB
     Indication: Nephrogenic anaemia
     Route: 048
     Dates: start: 20230320
  2. IBRANCE [Suspect]
     Active Substance: PALBOCICLIB
     Route: 048
  3. IBRANCE [Suspect]
     Active Substance: PALBOCICLIB
     Route: 048
     Dates: start: 20230918
  4. IBRANCE [Suspect]
     Active Substance: PALBOCICLIB
     Route: 048

REACTIONS (3)
  - Malaise [Unknown]
  - Off label use [Unknown]
  - Expired product administered [Unknown]

NARRATIVE: CASE EVENT DATE: 20230101
